FAERS Safety Report 8614136 (Version 3)
Quarter: 2012Q4

REPORT INFORMATION
  Report Type: 
  Country: US (occurrence: US)
  Receive Date: 20120614
  Receipt Date: 20120830
  Transmission Date: 20130627
  Serious: Yes (Other)
  Sender: FDA-Public Use
  Company Number: US-PFIZER INC-2012140446

PATIENT
  Age: 49 Year
  Sex: Female
  Weight: 113 kg

DRUGS (3)
  1. ZOLOFT [Suspect]
     Indication: DEPRESSION
     Dosage: 100 mg, 2x/day
     Route: 048
     Dates: start: 2009
  2. CALCIUM [Concomitant]
     Dosage: UNK
  3. HYDROCODONE [Concomitant]
     Dosage: UNK

REACTIONS (3)
  - Lung neoplasm malignant [Unknown]
  - Hernia [Unknown]
  - Pain [Unknown]
